FAERS Safety Report 18280485 (Version 1)
Quarter: 2020Q3

REPORT INFORMATION
  Report Type: Spontaneous
  Country: IT (occurrence: IT)
  Receive Date: 20200918
  Receipt Date: 20200918
  Transmission Date: 20201103
  Serious: Yes (Other)
  Sender: FDA-Public Use
  Company Number: IT-TEVA-2020-IT-1829529

PATIENT
  Age: 41 Year
  Sex: Female

DRUGS (4)
  1. JINARC [Suspect]
     Active Substance: TOLVAPTAN
     Indication: CONGENITAL CYSTIC KIDNEY DISEASE
     Dosage: THE INITIAL DOSE IS 60MG TOLVAPTAN PER DAY AS A SPLIT?DOSE REGIMEN OF 45MG+15MG
     Route: 065
  2. JINARC [Suspect]
     Active Substance: TOLVAPTAN
     Dosage: SPLIT?DOSE REGIMEN OF 90MG (60 MG+30 MG) PER DAY FROM WEEK 4.
     Route: 065
  3. JINARC [Suspect]
     Active Substance: TOLVAPTAN
     Dosage: SPLIT?DOSE REGIMEN OF 120MG (90MG+30MG) PER DAY AFTER 28 DAYS (WEEK 8).
     Route: 065
  4. AMOXICILLIN W/CLAVULANIC ACID [Suspect]
     Active Substance: AMOXICILLIN\CLAVULANIC ACID
     Indication: PYREXIA
     Dosage: 1 DF= 825/175MG AMOXICILLIN/CLAVULANIC ACID ?AT WEEK 11
     Route: 065

REACTIONS (3)
  - Drug-induced liver injury [Recovered/Resolved]
  - Hepatocellular injury [Recovered/Resolved]
  - Intentional product misuse [Unknown]
